FAERS Safety Report 6621653-3 (Version None)
Quarter: 2010Q1

REPORT INFORMATION
  Report Type: 
  Country: None (occurrence: None)
  Receive Date: 20100223
  Receipt Date: 20100119
  Transmission Date: 20100710
  Serious: No
  Sender: FDA-Public Use
  Company Number: 005117

PATIENT
  Sex: Female
  Weight: 81.8 kg

DRUGS (8)
  1. CIMZIA [Suspect]
     Indication: RHEUMATOID ARTHRITIS
     Dosage: 200 MG EVERY 14 DAYS SUBCUTANEOUS
     Route: 058
     Dates: start: 20090901, end: 20091201
  2. WARFARIN SODIUM [Concomitant]
  3. LEFLUNOMIDE [Concomitant]
  4. CELEBREX [Concomitant]
  5. OMEPRAZOLE [Concomitant]
  6. FOLIC ACID [Concomitant]
  7. ZOLEDRONIC ACID [Concomitant]
  8. VICODIN [Concomitant]

REACTIONS (2)
  - BACK PAIN [None]
  - SKIN ULCER [None]
